FAERS Safety Report 8370719-9 (Version None)
Quarter: 2012Q2

REPORT INFORMATION
  Report Type: 
  Country: None (occurrence: None)
  Receive Date: 20120517
  Receipt Date: 20110921
  Transmission Date: 20120825
  Serious: Yes (Other)
  Sender: FDA-Public Use
  Company Number: ADR-2011-11222

PATIENT
  Sex: Male

DRUGS (1)
  1. LIORESAL [Suspect]
     Indication: MUSCLE SPASTICITY
     Dosage: UNK MCG, DAILY, INTRATH
     Route: 037

REACTIONS (5)
  - IMPLANT SITE HAEMATOMA [None]
  - DEVICE RELATED INFECTION [None]
  - ENTEROBACTER TEST POSITIVE [None]
  - SKIN EROSION [None]
  - STAPHYLOCOCCUS TEST POSITIVE [None]
